FAERS Safety Report 17495010 (Version 2)
Quarter: 2021Q1

REPORT INFORMATION
  Report Type: Spontaneous
  Country: US (occurrence: US)
  Receive Date: 20200303
  Receipt Date: 20210303
  Transmission Date: 20210419
  Serious: No
  Sender: FDA-Public Use
  Company Number: US-AMNEAL PHARMACEUTICALS-2019-AMRX-03287

PATIENT
  Age: 76 Year
  Sex: Male

DRUGS (6)
  1. RYTARY [Suspect]
     Active Substance: CARBIDOPA\LEVODOPA
     Dosage: 3 CAPSULES, 5 /DAY
     Route: 048
     Dates: start: 20200210, end: 202002
  2. CARBIDOPA LEVODOPA [Concomitant]
     Active Substance: CARBIDOPA\LEVODOPA
     Indication: PARKINSON^S DISEASE
     Dosage: 2 TABLETS, 4X/DAY
     Route: 065
  3. METOPROLOL. [Concomitant]
     Active Substance: METOPROLOL
     Indication: BLOOD PRESSURE ABNORMAL
     Dosage: 25 MILLIGRAM, 1X/DAY
     Route: 065
  4. RYTARY [Suspect]
     Active Substance: CARBIDOPA\LEVODOPA
     Dosage: 3 CAPSULES, 1X/DAY, AT BEDTIME
     Route: 048
     Dates: start: 20200227
  5. RYTARY [Suspect]
     Active Substance: CARBIDOPA\LEVODOPA
     Dosage: 3 CAPSULES, 5 /DAY
     Route: 048
     Dates: start: 20191217
  6. RYTARY [Suspect]
     Active Substance: CARBIDOPA\LEVODOPA
     Indication: PARKINSON^S DISEASE
     Dosage: 3 CAPSULES, 4 /DAY
     Route: 048
     Dates: start: 20191023, end: 2019

REACTIONS (7)
  - Cough [Not Recovered/Not Resolved]
  - Weight decreased [Not Recovered/Not Resolved]
  - Balance disorder [Recovered/Resolved]
  - Dysphagia [Not Recovered/Not Resolved]
  - Product substitution issue [Unknown]
  - Dizziness [Recovered/Resolved]
  - Headache [Not Recovered/Not Resolved]

NARRATIVE: CASE EVENT DATE: 201910
